FAERS Safety Report 13966480 (Version 1)
Quarter: 2017Q3

REPORT INFORMATION
  Report Type: Spontaneous
  Country: FR (occurrence: FR)
  Receive Date: 20170913
  Receipt Date: 20170913
  Transmission Date: 20171128
  Serious: Yes (Hospitalization)
  Sender: FDA-Public Use
  Company Number: FR-ROCHE-1991932

PATIENT
  Age: 77 Year
  Sex: Male
  Weight: 60 kg

DRUGS (6)
  1. AVASTIN [Suspect]
     Active Substance: BEVACIZUMAB
     Indication: CARCINOID TUMOUR OF THE CAECUM
     Dosage: SOLUTION TO DILUTE FOR PERFUSION (25 MG/ML)
     Route: 042
     Dates: start: 20170613, end: 20170828
  2. FLUOROURACIL ACCORD [Suspect]
     Active Substance: FLUOROURACIL
     Route: 042
     Dates: start: 20170613
  3. OXALIPLATIN ACCORD [Suspect]
     Active Substance: OXALIPLATIN
     Indication: CARCINOID TUMOUR OF THE CAECUM
     Route: 042
     Dates: start: 20170613
  4. FLUOROURACIL ACCORD [Suspect]
     Active Substance: FLUOROURACIL
     Indication: CARCINOID TUMOUR OF THE CAECUM
     Route: 042
     Dates: start: 20170613, end: 20170718
  5. LOPRESSOR [Concomitant]
     Active Substance: METOPROLOL TARTRATE
     Route: 048
  6. SIMVASTATIN. [Concomitant]
     Active Substance: SIMVASTATIN
     Route: 048

REACTIONS (2)
  - Pulmonary embolism [Recovering/Resolving]
  - General physical health deterioration [Recovering/Resolving]

NARRATIVE: CASE EVENT DATE: 20170810
